FAERS Safety Report 12078947 (Version 1)
Quarter: 2016Q1

REPORT INFORMATION
  Report Type: Spontaneous
  Country: US (occurrence: US)
  Receive Date: 20160216
  Receipt Date: 20160216
  Transmission Date: 20160526
  Serious: No
  Sender: FDA-Public Use
  Company Number: US-ACCORD-037473

PATIENT
  Age: 68 Year
  Sex: Male
  Weight: 68.19 kg

DRUGS (2)
  1. CRESTOR [Concomitant]
     Active Substance: ROSUVASTATIN CALCIUM
  2. LISINOPRIL. [Suspect]
     Active Substance: LISINOPRIL
     Indication: HYPERTENSION
     Dosage: DOSE INCREASED ON 25-JAN-2016
     Route: 048
     Dates: start: 20160113

REACTIONS (1)
  - Drug ineffective [Not Recovered/Not Resolved]
